FAERS Safety Report 10435830 (Version 2)
Quarter: 2014Q3

REPORT INFORMATION
  Report Type: Spontaneous
  Country: DE (occurrence: None)
  Receive Date: 20140904
  Receipt Date: 20140905
  Transmission Date: 20150326
  Serious: Yes (Death, Life-Threatening, Hospitalization)
  Sender: FDA-Public Use
  Company Number: DE-JNJFOC-20140417833

PATIENT
  Age: 74 Year
  Sex: Male
  Weight: 103 kg

DRUGS (3)
  1. AMPHO MORONAL (AMPHOTERICIN B) [Concomitant]
  2. VALPROIC ACID (VALPROIC ACID) [Suspect]
     Active Substance: VALPROIC ACID
     Indication: ACUTE MYELOID LEUKAEMIA
     Dates: start: 20140216, end: 20140424
  3. DECITABINE (DECITABINE) LYOPHILIZED POWDER [Suspect]
     Active Substance: DECITABINE
     Indication: ACUTE MYELOID LEUKAEMIA
     Route: 042
     Dates: start: 20140408, end: 20140412

REACTIONS (3)
  - Cardiovascular disorder [None]
  - Oesophagitis [None]
  - Pneumonia [None]

NARRATIVE: CASE EVENT DATE: 20140424
